FAERS Safety Report 22307249 (Version 1)
Quarter: 2023Q2

REPORT INFORMATION
  Report Type: Spontaneous
  Country: US (occurrence: None)
  Receive Date: 20230511
  Receipt Date: 20230511
  Transmission Date: 20230721
  Serious: No
  Sender: FDA-Public Use
  Company Number: US-ROCHE-3071938

PATIENT
  Age: 46 Year
  Sex: Male
  Weight: 104.42 kg

DRUGS (1)
  1. OCREVUS [Suspect]
     Active Substance: OCRELIZUMAB
     Indication: Relapsing multiple sclerosis
     Dosage: THE PATIENT^S SECOND INFUSION OF OCREVUS WAS ON 15-MAR-2022.
     Route: 042
     Dates: start: 20220301

REACTIONS (3)
  - Nasopharyngitis [Recovering/Resolving]
  - Metamorphopsia [Not Recovered/Not Resolved]
  - Ear pain [Unknown]

NARRATIVE: CASE EVENT DATE: 20220401
